FAERS Safety Report 4757069-4 (Version None)
Quarter: 2005Q3

REPORT INFORMATION
  Report Type: 
  Country: None (occurrence: None)
  Receive Date: 20050829
  Receipt Date: 20050829
  Transmission Date: 20060218
  Serious: Yes (Hospitalization)
  Sender: FDA-Public Use
  Company Number: None

PATIENT
  Age: 51 Year
  Sex: Female
  Weight: 59.7 kg

DRUGS (14)
  1. PREDNISONE [Suspect]
     Indication: LYMPHOMA
     Dosage: 40 MG/M2 PO QD 1-14
     Route: 048
     Dates: start: 20050721, end: 20050803
  2. ADRIAMYCIN PFS [Suspect]
     Indication: LYMPHOMA
     Dosage: 40 MG IV D1 AND D8
     Route: 042
     Dates: start: 20050721
  3. ADRIAMYCIN PFS [Suspect]
     Indication: LYMPHOMA
     Dosage: 40 MG IV D1 AND D8
     Route: 042
     Dates: start: 20050728
  4. CYTOXAN [Suspect]
     Indication: LYMPHOMA
     Dosage: 1100 MG IV D1 + D8
     Route: 042
     Dates: start: 20050721
  5. CYTOXAN [Suspect]
     Indication: LYMPHOMA
     Dosage: 1100 MG IV D1 + D8
     Route: 042
     Dates: start: 20050728
  6. ETOPOSIDE [Suspect]
     Indication: LYMPHOMA
     Dosage: 200 MG IV D1 + DAY 8
     Route: 042
     Dates: start: 20050721
  7. ETOPOSIDE [Suspect]
     Indication: LYMPHOMA
     Dosage: 200 MG IV D1 + DAY 8
     Route: 042
     Dates: start: 20050728
  8. VALERIAN [Concomitant]
  9. LITHIUM CARBONATE [Concomitant]
  10. BACTRIM DS [Concomitant]
  11. DOCUSATE SODIUM [Concomitant]
  12. IBUPROFEN [Concomitant]
  13. AMOXICILLIN [Concomitant]
  14. OXYCODONE AND ACETAMINOPHEN [Concomitant]

REACTIONS (2)
  - CHILLS [None]
  - PYREXIA [None]
